FAERS Safety Report 5127257-6 (Version None)
Quarter: 2006Q4

REPORT INFORMATION
  Report Type: 
  Country: None (occurrence: None)
  Receive Date: 20061010
  Receipt Date: 20060928
  Transmission Date: 20070319
  Serious: Yes (Hospitalization)
  Sender: FDA-Public Use
  Company Number: 2006097479

PATIENT
  Age: 33 Year
  Sex: Female

DRUGS (4)
  1. MINOXIDIL [Suspect]
     Indication: ALOPECIA
     Dosage: TOPICAL
     Route: 061
     Dates: start: 20060301
  2. CYPROTERONE ACETATE (CYPROTERONE ACETATE) [Concomitant]
  3. PYRIDOXINE HCL [Concomitant]
  4. PROGESTERONE W/ESTROGENS/ (ESTROGEN NOS, PROGESTERONE) [Concomitant]

REACTIONS (7)
  - ANOREXIA [None]
  - CONDITION AGGRAVATED [None]
  - FLATULENCE [None]
  - GASTROINTESTINAL DISORDER [None]
  - HYPERTRICHOSIS [None]
  - REGURGITATION OF FOOD [None]
  - SENSORY DISTURBANCE [None]
